FAERS Safety Report 14258837 (Version 1)
Quarter: 2017Q4

REPORT INFORMATION
  Report Type: Spontaneous
  Country: US (occurrence: US)
  Receive Date: 20171206
  Receipt Date: 20171206
  Transmission Date: 20180321
  Serious: No
  Sender: FDA-Public Use
  Company Number: None

PATIENT
  Age: 42 Year
  Sex: Female
  Weight: 75.6 kg

DRUGS (1)
  1. BELVIQ [Suspect]
     Active Substance: LORCASERIN HYDROCHLORIDE
     Indication: WEIGHT DECREASED
     Dosage: QUANTITY:2 TABLET(S);?
     Route: 048
     Dates: start: 20171120

REACTIONS (2)
  - Product substitution issue [None]
  - Weight increased [None]

NARRATIVE: CASE EVENT DATE: 20171120
